FAERS Safety Report 4343417-6 (Version None)
Quarter: 2004Q1

REPORT INFORMATION
  Report Type: 
  Country: None (occurrence: None)
  Receive Date: 20040325
  Receipt Date: 20040114
  Transmission Date: 20041129
  Serious: No
  Sender: FDA-Public Use
  Company Number: USA040156649

PATIENT
  Age: 63 Year
  Sex: Female

DRUGS (2)
  1. FORTEO [Suspect]
     Indication: OSTEOPOROSIS
     Dates: start: 20040113
  2. CALCIUM [Concomitant]

REACTIONS (3)
  - FLUSHING [None]
  - GASTROINTESTINAL DISORDER [None]
  - HUNGER [None]
